FAERS Safety Report 15588145 (Version 3)
Quarter: 2023Q1

REPORT INFORMATION
  Report Type: Report from Study
  Country: US (occurrence: US)
  Receive Date: 20181105
  Receipt Date: 20230117
  Transmission Date: 20230417
  Serious: Yes (Hospitalization)
  Sender: FDA-Public Use
  Company Number: US-SHIRE-US201842598

PATIENT
  Age: 56 Year
  Sex: Female

DRUGS (8)
  1. TEDUGLUTIDE [Suspect]
     Active Substance: TEDUGLUTIDE
     Indication: Short-bowel syndrome
     Dosage: 0.270 INTERNATIONAL UNIT
     Route: 065
     Dates: start: 20180909
  2. TEDUGLUTIDE [Suspect]
     Active Substance: TEDUGLUTIDE
     Indication: Short-bowel syndrome
     Dosage: 0.270 INTERNATIONAL UNIT
     Route: 065
     Dates: start: 20180909
  3. TEDUGLUTIDE [Suspect]
     Active Substance: TEDUGLUTIDE
     Indication: Short-bowel syndrome
     Dosage: 0.270 INTERNATIONAL UNIT
     Route: 065
     Dates: start: 20180909
  4. TEDUGLUTIDE [Suspect]
     Active Substance: TEDUGLUTIDE
     Indication: Short-bowel syndrome
     Dosage: 0.270 INTERNATIONAL UNIT
     Route: 065
     Dates: start: 20180909
  5. TEDUGLUTIDE [Suspect]
     Active Substance: TEDUGLUTIDE
     Dosage: UNK
     Route: 050
     Dates: start: 20180909
  6. TEDUGLUTIDE [Suspect]
     Active Substance: TEDUGLUTIDE
     Dosage: UNK
     Route: 050
     Dates: start: 20180909
  7. TEDUGLUTIDE [Suspect]
     Active Substance: TEDUGLUTIDE
     Dosage: UNK
     Route: 050
     Dates: start: 20180909
  8. TEDUGLUTIDE [Suspect]
     Active Substance: TEDUGLUTIDE
     Dosage: UNK
     Route: 050
     Dates: start: 20180909

REACTIONS (5)
  - Gastric disorder [Unknown]
  - Abdominal pain upper [Recovering/Resolving]
  - Abdominal distension [Recovering/Resolving]
  - Product dose omission issue [Recovering/Resolving]
  - Product use issue [Unknown]

NARRATIVE: CASE EVENT DATE: 20181022
